FAERS Safety Report 13395566 (Version 1)
Quarter: 2017Q2

REPORT INFORMATION
  Report Type: Spontaneous
  Country: US (occurrence: US)
  Receive Date: 20170401
  Receipt Date: 20170401
  Transmission Date: 20170830
  Serious: Yes (Hospitalization, Disabling)
  Sender: FDA-Public Use
  Company Number: None

PATIENT
  Age: 29 Year
  Sex: Female
  Weight: 60.3 kg

DRUGS (1)
  1. SEPTOCAINE [Suspect]
     Active Substance: ARTICAINE HYDROCHLORIDE\EPINEPHRINE BITARTRATE
     Indication: PRODUCT USED FOR UNKNOWN INDICATION
     Dosage: ?          QUANTITY:1 INJECTION(S);?
     Route: 058
     Dates: start: 20170324, end: 20170324

REACTIONS (11)
  - Weight decreased [None]
  - Headache [None]
  - Anxiety [None]
  - Pain in extremity [None]
  - Facial nerve disorder [None]
  - Chest pain [None]
  - Nerve injury [None]
  - Tremor [None]
  - Paraesthesia [None]
  - Insomnia [None]
  - Neck pain [None]

NARRATIVE: CASE EVENT DATE: 20170324
